FAERS Safety Report 4992979-4 (Version None)
Quarter: 2006Q2

REPORT INFORMATION
  Report Type: 
  Country: None (occurrence: None)
  Receive Date: 20060504
  Receipt Date: 20050606
  Transmission Date: 20061013
  Serious: Yes (Hospitalization)
  Sender: FDA-Public Use
  Company Number: PR-MERCK-0506USA01035

PATIENT
  Age: 41 Year
  Sex: Female
  Weight: 75 kg

DRUGS (1)
  1. VIOXX [Suspect]
     Route: 048

REACTIONS (12)
  - ACUTE CORONARY SYNDROME [None]
  - CHEST PAIN [None]
  - CORONARY ARTERY DISEASE [None]
  - DEEP VEIN THROMBOSIS [None]
  - EYE PAIN [None]
  - FIBROMYALGIA [None]
  - HYPERTENSION [None]
  - HYPOAESTHESIA [None]
  - MIGRAINE WITHOUT AURA [None]
  - PULMONARY EMBOLISM [None]
  - SINUS BRADYCARDIA [None]
  - THROMBOPHLEBITIS SUPERFICIAL [None]
